FAERS Safety Report 24257110 (Version 1)
Quarter: 2024Q3

REPORT INFORMATION
  Report Type: Spontaneous
  Country: BR (occurrence: BR)
  Receive Date: 20240828
  Receipt Date: 20240828
  Transmission Date: 20241017
  Serious: Yes (Death)
  Sender: CELLTRION
  Company Number: BR-CELLTRION INC.-2023BR003157

PATIENT

DRUGS (4)
  1. TRUXIMA [Suspect]
     Active Substance: RITUXIMAB-ABBS
     Indication: Pulmonary fibrosis
     Dosage: 2VIALS ON DAY 0, AFTER 15 DAYS MORE 2 VIALS AND SO, ONLY AFTER 6 MONTHS (THE PATIENT HAD THE FIRST I
     Route: 042
  2. TRUXIMA [Suspect]
     Active Substance: RITUXIMAB-ABBS
     Dosage: 4 AMPOULES (500 MG EACH) EVERY 6 MONTHS
     Route: 042
     Dates: start: 202404
  3. PREDNISONE [Concomitant]
     Active Substance: PREDNISONE
     Indication: Fatigue
     Dosage: 1 CAPSULE PER DAY
     Route: 048
     Dates: start: 20221216
  4. PREDNISONE [Concomitant]
     Active Substance: PREDNISONE
     Indication: Cough

REACTIONS (3)
  - Death [Fatal]
  - Treatment delayed [Unknown]
  - Intentional product use issue [Unknown]

NARRATIVE: CASE EVENT DATE: 20240512
